FAERS Safety Report 6291940-X (Version None)
Quarter: 2009Q3

REPORT INFORMATION
  Report Type: 
  Country: None (occurrence: None)
  Receive Date: 20090729
  Receipt Date: 20090714
  Transmission Date: 20100115
  Serious: Yes (Disabling)
  Sender: FDA-Public Use
  Company Number: 335989

PATIENT

DRUGS (1)
  1. BUPIVACAINE HCL [Suspect]
     Indication: ANALGESIA
     Dosage: CONTINUOUS, INJECTION
     Route: 042
     Dates: start: 19990101

REACTIONS (4)
  - ACTIVITIES OF DAILY LIVING IMPAIRED [None]
  - JOINT INJURY [None]
  - MUSCULOSKELETAL DISCOMFORT [None]
  - MUSCULOSKELETAL PAIN [None]
